FAERS Safety Report 5876114-6 (Version None)
Quarter: 2008Q3

REPORT INFORMATION
  Report Type: 
  Country: None (occurrence: None)
  Receive Date: 20080905
  Receipt Date: 20080825
  Transmission Date: 20090109
  Serious: Yes (Other)
  Sender: FDA-Public Use
  Company Number: 2008-03143

PATIENT
  Age: 58 Year
  Sex: Female
  Weight: 61 kg

DRUGS (8)
  1. VELCADE [Suspect]
     Indication: MULTIPLE MYELOMA
     Dosage: 21. MG/M2, INTRAVENOUS
     Route: 042
     Dates: start: 20071002, end: 20071102
  2. VELCADE [Suspect]
     Indication: MULTIPLE MYELOMA
     Dosage: 21. MG/M2, INTRAVENOUS
     Route: 042
     Dates: start: 20071113, end: 20071122
  3. DEXAMETHASONE [Suspect]
     Indication: MULTIPLE MYELOMA
     Dosage: 8 MG, INTRAVENOUS; 20 MG, INTAVENOUS
     Route: 042
     Dates: start: 20071002, end: 20071026
  4. DEXAMETHASONE [Suspect]
     Indication: MULTIPLE MYELOMA
     Dosage: 8 MG, INTRAVENOUS; 20 MG, INTAVENOUS
     Route: 042
     Dates: start: 20071002, end: 20071026
  5. BAKTAR(SULFAMETHOXAZOLE, TRIMETHOPRIM) TABLET [Suspect]
     Indication: PROPHYLAXIS
     Dosage: 2 DF, ORAL
     Route: 048
     Dates: start: 20070823, end: 20071203
  6. RED BLOOD CLEE,S CONCENTRATED (RED BLOOD CELLS, CONCENTRATED) [Concomitant]
  7. ZOVIRAX [Concomitant]
  8. VALTREX [Concomitant]

REACTIONS (1)
  - ERYTHEMA MULTIFORME [None]
